FAERS Safety Report 16403471 (Version 3)
Quarter: 2019Q3

REPORT INFORMATION
  Report Type: Spontaneous
  Country: US (occurrence: US)
  Receive Date: 20190607
  Receipt Date: 20190920
  Transmission Date: 20191004
  Serious: No
  Sender: FDA-Public Use
  Company Number: US-GLAXOSMITHKLINE-US2019AMR098840

PATIENT

DRUGS (1)
  1. VENTOLIN HFA [Suspect]
     Active Substance: ALBUTEROL SULFATE
     Indication: ASTHMA
     Dosage: 200 PUFF(S), UNK
     Route: 065

REACTIONS (6)
  - Product dose omission [Unknown]
  - Drug ineffective [Not Recovered/Not Resolved]
  - Stress [Unknown]
  - Product complaint [Unknown]
  - Ill-defined disorder [Unknown]
  - Device malfunction [Unknown]
